FAERS Safety Report 9512612 (Version 1)
Quarter: 2013Q1

REPORT INFORMATION
  Report Type: Spontaneous
  Country: US (occurrence: None)
  Receive Date: 20130305
  Receipt Date: 20130305
  Transmission Date: 20140127
  Serious: Yes (Other)
  Sender: FDA-Public Use
  Company Number: 163-21880-12100708

PATIENT
  Age: 58 Year
  Sex: Male
  Weight: 68.95 kg

DRUGS (4)
  1. REVLIMID (LENALIDOMIDE) (25 MILLIGRAM, CAPSULES) [Suspect]
     Indication: PLASMA CELL MYELOMA
     Dosage: 25 MG, 21 IN 21 D, PO
     Route: 048
     Dates: start: 20110910
  2. AVELOX (MOXIFLOXACIN HYDROCHLORIDE) (UNKNOWN) [Concomitant]
  3. PROTONIX (UNKNOWN) [Concomitant]
  4. DEXAMETHASONE (DEXAMETHASONE) (UNKNOWN) [Concomitant]

REACTIONS (3)
  - Drug dose omission [None]
  - Insomnia [None]
  - Sinusitis [None]
